FAERS Safety Report 21913535 (Version 3)
Quarter: 2023Q1

REPORT INFORMATION
  Report Type: Spontaneous
  Country: US (occurrence: US)
  Receive Date: 20230125
  Receipt Date: 20230302
  Transmission Date: 20230417
  Serious: No
  Sender: FDA-Public Use
  Company Number: US-BAUSCHBL-2023BNL000453

PATIENT
  Age: 75 Year
  Sex: Male
  Weight: 90.800 kg

DRUGS (1)
  1. ZIRGAN [Suspect]
     Active Substance: GANCICLOVIR
     Indication: Corneal infection
     Dosage: FOR 7 DAYS,5 TIMES FOR 35 DROPS AND 3 TIMES FOR 21 DROPS
     Route: 065
     Dates: start: 20230106, end: 20230118

REACTIONS (3)
  - Application site burn [Recovered/Resolved]
  - Inability to afford medication [Unknown]
  - Product packaging quantity issue [Unknown]

NARRATIVE: CASE EVENT DATE: 20230106
